FAERS Safety Report 12740317 (Version 1)
Quarter: 2016Q3

REPORT INFORMATION
  Report Type: Spontaneous
  Country: US (occurrence: US)
  Receive Date: 20160913
  Receipt Date: 20160913
  Transmission Date: 20161109
  Serious: Yes (Hospitalization)
  Sender: FDA-Public Use
  Company Number: US-AMNEAL PHARMACEUTICALS-2016AMN00510

PATIENT
  Age: 72 Year
  Sex: Female
  Weight: 82.99 kg

DRUGS (3)
  1. NAPROXEN. [Suspect]
     Active Substance: NAPROXEN
     Indication: OSTEOARTHRITIS
     Dosage: (375 OR 500MG TWICE A DAY)
     Dates: start: 20070922, end: 20091117
  2. ESOPRAZOLE (NEXIUM) [Concomitant]
     Dosage: UNK, 2X/DAY
     Route: 048
  3. QUINAPRIL. [Concomitant]
     Active Substance: QUINAPRIL
     Dosage: UNK (20/12.5) ONCE DAILY
     Route: 048

REACTIONS (4)
  - Gastritis [Recovered/Resolved]
  - Chest pain [Recovered/Resolved]
  - Atelectasis [Unknown]
  - Nausea [Recovered/Resolved]

NARRATIVE: CASE EVENT DATE: 20091117
